FAERS Safety Report 22239600 (Version 1)
Quarter: 2023Q2

REPORT INFORMATION
  Report Type: Spontaneous
  Country: IN (occurrence: IN)
  Receive Date: 20230421
  Receipt Date: 20230421
  Transmission Date: 20230722
  Serious: Yes (Other)
  Sender: FDA-Public Use
  Company Number: IN-PFIZER INC-2021136975

PATIENT
  Age: 65 Year
  Sex: Female

DRUGS (8)
  1. PALBOCICLIB [Suspect]
     Active Substance: PALBOCICLIB
     Indication: Breast cancer metastatic
     Dosage: 125 MG, CYCLIC (ONCE A DAY, 3 WEEKS ON 1 WEEK OFF)
     Route: 048
     Dates: start: 20201103
  2. PALBOCICLIB [Suspect]
     Active Substance: PALBOCICLIB
     Dosage: 125 MG, 1X/DAY
     Route: 048
     Dates: start: 20210721
  3. PALBOCICLIB [Suspect]
     Active Substance: PALBOCICLIB
     Dosage: 100 MG OD, CYCLIC (3 WEEKS AND 1 WEEK OFF)
     Route: 048
  4. PALBOCICLIB [Suspect]
     Active Substance: PALBOCICLIB
     Indication: Breast cancer metastatic
     Dosage: 100 MG, CYCLIC (ONCE DAILY X 3 WEEKS AND 1 WEEK OFF)
     Route: 048
  5. FEMARA [Concomitant]
     Active Substance: LETROZOLE
     Dosage: 2.5 MG, 1X/DAY, FOR 4 WEEKS
     Dates: start: 202011
  6. CALCIUM\CHOLECALCIFEROL [Concomitant]
     Active Substance: CALCIUM\CHOLECALCIFEROL
     Dosage: UNK, 1X/DAY (500 (NO UNIT), FOR 4 WEEKS)
  7. CALCIUM\CHOLECALCIFEROL [Concomitant]
     Active Substance: CALCIUM\CHOLECALCIFEROL
     Dosage: 500 MG, 2X/DAY FOR 4 WEEKS
  8. ECONORM [Concomitant]
     Dosage: UNK, 1X/DAY

REACTIONS (9)
  - Blood pressure systolic increased [Unknown]
  - Neoplasm progression [Unknown]
  - Product use issue [Unknown]
  - Abscess [Unknown]
  - Thyroid disorder [Not Recovered/Not Resolved]
  - Blood calcium decreased [Not Recovered/Not Resolved]
  - Urinary tract infection [Not Recovered/Not Resolved]
  - Heart rate increased [Unknown]
  - Mean arterial pressure increased [Unknown]

NARRATIVE: CASE EVENT DATE: 20230417
